FAERS Safety Report 7240568-3 (Version None)
Quarter: 2011Q1

REPORT INFORMATION
  Report Type: 
  Country: None (occurrence: None)
  Receive Date: 20110120
  Receipt Date: 20110120
  Transmission Date: 20110831
  Serious: Yes (Disabling, Other)
  Sender: FDA-Public Use
  Company Number: None

PATIENT
  Age: 70 Year
  Sex: Male
  Weight: 58.9676 kg

DRUGS (2)
  1. FLAGYL [Suspect]
     Indication: CLOSTRIDIAL INFECTION
     Dosage: 500MG 3X DAY FOR 14
     Dates: start: 20080722, end: 20080806
  2. CEPHALEXIN [Suspect]
     Indication: SKIN ULCER
     Dosage: 500 MG 3X DAY FOR 10
     Dates: start: 20080710, end: 20080720

REACTIONS (4)
  - MUSCLE SPASMS [None]
  - INFECTION [None]
  - NUCLEAR MAGNETIC RESONANCE IMAGING [None]
  - AGGRESSION [None]
